FAERS Safety Report 6984614-0 (Version None)
Quarter: 2010Q3

REPORT INFORMATION
  Report Type: 
  Country: None (occurrence: None)
  Receive Date: 20100913
  Receipt Date: 20100902
  Transmission Date: 20110219
  Serious: Yes (Disabling)
  Sender: FDA-Public Use
  Company Number: 1-14831530

PATIENT
  Age: 85 Year
  Sex: Female
  Weight: 58.514 kg

DRUGS (5)
  1. FELODIPINE ER TABLET 2.5 MG [Suspect]
     Indication: HYPERTENSION
     Dosage: 2.5 MG ONCE DAILY, ORAL
     Route: 048
     Dates: start: 20060418
  2. SPIRONOLACTONE [Suspect]
     Indication: HYPERTENSION
     Dosage: ORAL
     Route: 048
  3. NORPACE [Concomitant]
  4. LANOXIN [Concomitant]
  5. DYRENIUM (TRIAMTERENE) [Concomitant]

REACTIONS (20)
  - ARTHRALGIA [None]
  - ARTHRITIS [None]
  - BLINDNESS TRANSIENT [None]
  - CHROMATOPSIA [None]
  - DECREASED APPETITE [None]
  - DIZZINESS [None]
  - DRUG INEFFECTIVE [None]
  - EYE PAIN [None]
  - FEELING ABNORMAL [None]
  - GAIT DISTURBANCE [None]
  - HAEMORRHAGE [None]
  - HEADACHE [None]
  - HYPERTENSION [None]
  - NECK PAIN [None]
  - OPTIC NERVE DISORDER [None]
  - PAIN [None]
  - SEPSIS [None]
  - SKIN MASS [None]
  - TREMOR [None]
  - WEIGHT DECREASED [None]
